FAERS Safety Report 10163675 (Version 1)
Quarter: 2014Q2

REPORT INFORMATION
  Report Type: Spontaneous
  Country: US (occurrence: US)
  Receive Date: 20140509
  Receipt Date: 20140509
  Transmission Date: 20141212
  Serious: Yes (Hospitalization)
  Sender: FDA-Public Use
  Company Number: US-BAXTER-2014BAX022851

PATIENT
  Age: 24 Year
  Sex: Female

DRUGS (1)
  1. TISSEEL VH S/D [Suspect]
     Indication: SPINAL LAMINECTOMY
     Route: 061
     Dates: start: 20140430, end: 20140430

REACTIONS (1)
  - Peroneal nerve palsy [Unknown]
